FAERS Safety Report 10593901 (Version 1)
Quarter: 2014Q4

REPORT INFORMATION
  Report Type: Other
  Country: GB (occurrence: GB)
  Receive Date: 20141119
  Receipt Date: 20141119
  Transmission Date: 20150529
  Serious: Yes (Other)
  Sender: FDA-Public Use
  Company Number: GB-NAPPMUNDI-DEU-2014-0015730

PATIENT
  Age: 66 Year
  Sex: Female

DRUGS (4)
  1. PREGABALIN. [Concomitant]
     Active Substance: PREGABALIN
     Dosage: 100 MG, BID
     Route: 065
  2. HYDROMORPHONE HCL PR CAPSULE [Suspect]
     Active Substance: HYDROMORPHONE HYDROCHLORIDE
     Indication: BACK PAIN
     Dosage: 24 MG, BID
     Route: 048
  3. HYDROMORPHONE HCL PR CAPSULE [Suspect]
     Active Substance: HYDROMORPHONE HYDROCHLORIDE
     Dosage: 48 MG, BID
     Route: 048
  4. PREGABALIN. [Concomitant]
     Active Substance: PREGABALIN
     Indication: PRODUCT USED FOR UNKNOWN INDICATION
     Dosage: 75 MG, BID
     Route: 065

REACTIONS (4)
  - Toxicity to various agents [Recovered/Resolved]
  - Hearing impaired [Recovered/Resolved]
  - Somnolence [Unknown]
  - Myoclonus [Unknown]
